FAERS Safety Report 6873437-9 (Version None)
Quarter: 2010Q3

REPORT INFORMATION
  Report Type: 
  Country: None (occurrence: None)
  Receive Date: 20100723
  Receipt Date: 20090121
  Transmission Date: 20110219
  Serious: No
  Sender: FDA-Public Use
  Company Number: US-PFIZER INC-2009157978

PATIENT
  Sex: Female
  Weight: 52.6 kg

DRUGS (10)
  1. CHANTIX [Suspect]
     Indication: SMOKING CESSATION THERAPY
     Dosage: 0.5 MG, 1X/DAY
     Dates: start: 20090113
  2. MORPHINE [Concomitant]
     Dosage: UNK
  3. CLONAZEPAM [Concomitant]
     Dosage: 2 MG, 1X/DAY
  4. CYMBALTA [Concomitant]
     Dosage: 60 MG, 1X/DAY
  5. QUININE SULFATE [Concomitant]
     Indication: MUSCLE SPASMS
     Dosage: 324 MG, 1X/DAY
  6. PREVACID [Concomitant]
     Dosage: 30 MG, 1X/DAY
  7. SYNTHROID [Concomitant]
     Dosage: 0.5 MG, 1X/DAY
  8. ZOLPIDEM [Concomitant]
     Dosage: 10 MG, 1X/DAY
  9. CARISOPRODOL [Concomitant]
     Dosage: 350 MG, 4X/DAY
  10. VITAMINS [Concomitant]
     Dosage: UNK

REACTIONS (4)
  - ABDOMINAL PAIN UPPER [None]
  - DIARRHOEA [None]
  - NAUSEA [None]
  - SOMNOLENCE [None]
